FAERS Safety Report 7824611-6 (Version None)
Quarter: 2011Q4

REPORT INFORMATION
  Report Type: 
  Country: None (occurrence: None)
  Receive Date: 20111019
  Receipt Date: 20111014
  Transmission Date: 20120403
  Serious: Yes (Other)
  Sender: FDA-Public Use
  Company Number: US-GENZYME-CERZ-1002263

PATIENT
  Sex: Female

DRUGS (1)
  1. CEREZYME [Suspect]
     Indication: GAUCHER'S DISEASE
     Dosage: 42 U/KG, Q2W
     Route: 042
     Dates: start: 19930101

REACTIONS (2)
  - SUBCHORIONIC HAEMORRHAGE [None]
  - URINARY TRACT INFECTION [None]
